FAERS Safety Report 4609547-6 (Version None)
Quarter: 2005Q1

REPORT INFORMATION
  Report Type: 
  Country: None (occurrence: None)
  Receive Date: 20050314
  Receipt Date: 20050314
  Transmission Date: 20050727
  Serious: Yes (Hospitalization)
  Sender: FDA-Public Use
  Company Number: None

PATIENT
  Age: 64 Year
  Sex: Male
  Weight: 45.3597 kg

DRUGS (1)
  1. WARFARIN    5 MG [Suspect]
     Indication: ATRIAL FIBRILLATION
     Dosage: 5 MG    M, TH, SAT     ORAL
     Route: 048
     Dates: start: 20020401, end: 20050309

REACTIONS (8)
  - ASTHENIA [None]
  - DRUG TOXICITY [None]
  - HUNGER [None]
  - INTERNATIONAL NORMALISED RATIO INCREASED [None]
  - NASOPHARYNGITIS [None]
  - ORAL INTAKE REDUCED [None]
  - SPUTUM DISCOLOURED [None]
  - WEIGHT DECREASED [None]
